FAERS Safety Report 4619242-5 (Version None)
Quarter: 2005Q1

REPORT INFORMATION
  Report Type: 
  Country: None (occurrence: None)
  Receive Date: 20050325
  Receipt Date: 20050303
  Transmission Date: 20050727
  Serious: Yes (Life-Threatening, Disabling, Other)
  Sender: FDA-Public Use
  Company Number: JP-BRISTOL-MYERS SQUIBB COMPANY-12884623

PATIENT
  Age: 79 Year
  Sex: Male

DRUGS (11)
  1. TAXOL [Suspect]
     Indication: LUNG SQUAMOUS CELL CARCINOMA STAGE UNSPECIFIED
     Dosage: START DATE:  07-DEC-2004
     Route: 041
     Dates: start: 20050222, end: 20050222
  2. PARAPLATIN [Suspect]
     Indication: LUNG SQUAMOUS CELL CARCINOMA STAGE UNSPECIFIED
     Dosage: START DATE:  07-DEC-2004
     Route: 040
     Dates: start: 20050208, end: 20050208
  3. DECADRON [Suspect]
     Indication: PREMEDICATION
     Route: 041
     Dates: start: 20041207, end: 20050222
  4. NASEA [Concomitant]
     Route: 041
     Dates: start: 20041207, end: 20050222
  5. GASTER [Concomitant]
     Route: 041
     Dates: start: 20041207, end: 20050222
  6. RESTAMIN [Concomitant]
     Route: 048
     Dates: start: 20041207, end: 20050222
  7. ZESTRIL [Concomitant]
     Route: 048
     Dates: start: 19961029, end: 20050224
  8. MS CONTIN [Concomitant]
     Route: 048
     Dates: start: 20050222, end: 20050224
  9. CODEINE PHOSPHATE [Concomitant]
     Route: 048
     Dates: start: 20050208, end: 20050224
  10. MAGNESIUM OXIDE [Concomitant]
     Route: 048
     Dates: start: 20050208, end: 20050224
  11. MUCOSTA [Concomitant]
     Route: 048
     Dates: start: 20050208, end: 20050224

REACTIONS (2)
  - CEREBRAL INFARCTION [None]
  - CONVULSION [None]
